FAERS Safety Report 24417893 (Version 1)
Quarter: 2024Q4

REPORT INFORMATION
  Report Type: Spontaneous
  Country: US (occurrence: US)
  Receive Date: 20241009
  Receipt Date: 20241009
  Transmission Date: 20250115
  Serious: Yes (Death, Hospitalization, Other)
  Sender: DR REDDYS
  Company Number: US-DRL-USA-LIT/USA/24/0014738

PATIENT
  Age: 63 Year
  Sex: Male

DRUGS (13)
  1. METFORMIN [Suspect]
     Active Substance: METFORMIN HYDROCHLORIDE
     Indication: Type 2 diabetes mellitus
  2. VASOPRESSIN [Suspect]
     Active Substance: VASOPRESSIN
     Indication: Hypotension
     Route: 041
  3. PHENYLEPHRINE [Suspect]
     Active Substance: PHENYLEPHRINE HYDROCHLORIDE
     Indication: Hypotension
     Route: 041
  4. PHENYLEPHRINE [Suspect]
     Active Substance: PHENYLEPHRINE HYDROCHLORIDE
     Indication: Bradycardia
  5. EPINEPHRINE [Concomitant]
     Active Substance: EPINEPHRINE
     Indication: Hypotension
     Route: 041
  6. NOREPINEPHRINE [Concomitant]
     Active Substance: NOREPINEPHRINE\NOREPINEPHRINE BITARTRATE
     Indication: Hypotension
     Route: 041
  7. ISOPROTERENOL [Concomitant]
     Active Substance: ISOPROTERENOL
     Indication: Hypotension
     Route: 041
  8. ISOPROTERENOL [Concomitant]
     Active Substance: ISOPROTERENOL
     Indication: Bradycardia
  9. CALCIUM GLUCONATE [Concomitant]
     Active Substance: CALCIUM GLUCONATE
     Indication: Bradycardia
  10. ATROPINE [Concomitant]
     Active Substance: ATROPINE
     Indication: Bradycardia
  11. LOSARTAN [Concomitant]
     Active Substance: LOSARTAN
     Indication: Hypertension
  12. METOPROLOL TARTRATE [Concomitant]
     Active Substance: METOPROLOL TARTRATE
     Indication: Product used for unknown indication
  13. AMLODIPINE [Concomitant]
     Active Substance: AMLODIPINE BESYLATE
     Indication: Hypertension

REACTIONS (3)
  - Drug ineffective [Fatal]
  - Multiple drug therapy [Unknown]
  - Product use in unapproved indication [Unknown]
